FAERS Safety Report 23455356 (Version 5)
Quarter: 2024Q2

REPORT INFORMATION
  Report Type: Spontaneous
  Country: JP (occurrence: JP)
  Receive Date: 20240130
  Receipt Date: 20240404
  Transmission Date: 20240716
  Serious: Yes (Hospitalization, Other)
  Sender: FDA-Public Use
  Company Number: JP-JNJFOC-20240170223

PATIENT
  Age: 45 Year
  Sex: Male

DRUGS (22)
  1. INVEGA [Suspect]
     Active Substance: PALIPERIDONE
     Indication: Schizophrenia
     Dosage: DOSE UNKNOWN
     Route: 048
     Dates: start: 202106
  2. INVEGA [Suspect]
     Active Substance: PALIPERIDONE
     Indication: Schizophrenia
     Dosage: MAX
     Route: 048
  3. INVEGA [Suspect]
     Active Substance: PALIPERIDONE
     Indication: Schizophrenia
     Dosage: DOSE UNKNOWNGRADUALLY DECREASED
     Route: 048
  4. INVEGA [Suspect]
     Active Substance: PALIPERIDONE
     Indication: Schizophrenia
     Route: 048
  5. INVEGA [Suspect]
     Active Substance: PALIPERIDONE
     Indication: Schizophrenia
     Dosage: 3MG IN THE MORNING3MG AT NIGHT
     Route: 048
  6. INVEGA [Suspect]
     Active Substance: PALIPERIDONE
     Indication: Schizophrenia
     Dosage: AT NIGHT
     Route: 048
     Dates: start: 20240118, end: 20240118
  7. INVEGA [Suspect]
     Active Substance: PALIPERIDONE
     Indication: Schizophrenia
     Dosage: DOSE UNKNOWNIN THE AFTERNOON
     Route: 048
     Dates: start: 20240119, end: 20240119
  8. INVEGA [Suspect]
     Active Substance: PALIPERIDONE
     Indication: Schizophrenia
     Dosage: IN THE MORNING
     Route: 048
     Dates: start: 2024, end: 2024
  9. INVEGA [Suspect]
     Active Substance: PALIPERIDONE
     Indication: Schizophrenia
     Route: 048
  10. INVEGA [Suspect]
     Active Substance: PALIPERIDONE
     Indication: Schizophrenia
     Route: 048
  11. INVEGA [Suspect]
     Active Substance: PALIPERIDONE
     Dosage: 3MG AFTER LUNCH3MG AT NIGHT
     Route: 048
  12. INVEGA [Suspect]
     Active Substance: PALIPERIDONE
     Route: 048
  13. INVEGA [Suspect]
     Active Substance: PALIPERIDONE
     Dosage: DOSE UNKNOWN
     Route: 048
     Dates: start: 202106
  14. INVEGA [Suspect]
     Active Substance: PALIPERIDONE
     Dosage: IN THE MORNING, IN THE AFTERNOON
     Route: 048
     Dates: start: 2024, end: 2024
  15. INVEGA [Suspect]
     Active Substance: PALIPERIDONE
     Route: 048
     Dates: start: 2024, end: 2024
  16. INVEGA [Suspect]
     Active Substance: PALIPERIDONE
     Route: 048
     Dates: start: 20240328
  17. RISPERDAL [Suspect]
     Active Substance: RISPERIDONE
     Indication: Schizophrenia
     Dosage: DOSE UNKNOWN, MAX
     Route: 048
  18. LATUDA [Suspect]
     Active Substance: LURASIDONE HYDROCHLORIDE
     Indication: Product used for unknown indication
     Dosage: DOSE UNKNOWN
     Route: 048
     Dates: start: 202106
  19. LATUDA [Suspect]
     Active Substance: LURASIDONE HYDROCHLORIDE
     Dosage: DOSE UNKNOWNGRADUALLY DECREASED
     Route: 048
  20. BLONANSERIN [Concomitant]
     Active Substance: BLONANSERIN
     Indication: Product used for unknown indication
     Route: 065
     Dates: start: 20240119, end: 2024
  21. BLONANSERIN [Concomitant]
     Active Substance: BLONANSERIN
     Route: 065
     Dates: start: 2024, end: 2024
  22. LITHIUM CARBONATE [Concomitant]
     Active Substance: LITHIUM CARBONATE
     Dosage: DOSE UNKNOWN
     Route: 048

REACTIONS (18)
  - Hospitalisation [Unknown]
  - Mental impairment [Unknown]
  - Withdrawal syndrome [Unknown]
  - Renal impairment [Unknown]
  - Screaming [Unknown]
  - Restlessness [Unknown]
  - Blood creatinine increased [Unknown]
  - Anger [Unknown]
  - Anxiety [Unknown]
  - Strabismus [Unknown]
  - Weight increased [Unknown]
  - Pruritus [Unknown]
  - Dysarthria [Unknown]
  - Miliaria [Unknown]
  - Product dose omission issue [Unknown]
  - Inappropriate schedule of product administration [Unknown]
  - Off label use [Unknown]
  - Adverse event [Unknown]

NARRATIVE: CASE EVENT DATE: 20230301
